FAERS Safety Report 20598314 (Version 1)
Quarter: 2022Q1

REPORT INFORMATION
  Report Type: Spontaneous
  Country: US (occurrence: US)
  Receive Date: 20220315
  Receipt Date: 20220315
  Transmission Date: 20220423
  Serious: No
  Sender: FDA-Public Use
  Company Number: US-PERRIGO-21US003273

PATIENT
  Age: 70 Year
  Sex: Female
  Weight: 67.574 kg

DRUGS (15)
  1. OLOPATADINE HYDROCHLORIDE [Suspect]
     Active Substance: OLOPATADINE HYDROCHLORIDE
     Indication: Mite allergy
     Dosage: 2 SPRAYS IN EACH NOSTRIL, BID
     Route: 045
     Dates: start: 202009, end: 20210302
  2. OLOPATADINE HYDROCHLORIDE [Suspect]
     Active Substance: OLOPATADINE HYDROCHLORIDE
     Dosage: 1 SPRAY IN EACH NOSTRIL, SINGLE
     Route: 045
     Dates: start: 202103, end: 202103
  3. MUPIROCIN [Suspect]
     Active Substance: MUPIROCIN
     Indication: Micrographic skin surgery
     Dosage: TINY BIT, 1-2 TIMES DAILY
     Route: 061
     Dates: start: 202102, end: 20210301
  4. LEVOTHYROXINE [Concomitant]
     Active Substance: LEVOTHYROXINE
     Indication: Hypothyroidism
     Dosage: UNKNOWN, UNKNOWN
     Route: 065
  5. OMEPRAZOLE [Concomitant]
     Active Substance: OMEPRAZOLE
     Indication: Gastrooesophageal reflux disease
     Dosage: UNKNOWN, UNKNOWN
     Route: 065
  6. MONTELUKAST [Concomitant]
     Active Substance: MONTELUKAST SODIUM
     Indication: Lung disorder
     Dosage: UNKNOWN, UNKNOWN
     Route: 065
  7. GABAPENTIN [Concomitant]
     Active Substance: GABAPENTIN
     Indication: Back pain
     Dosage: UNKNOWN, UNKNOWN
     Route: 065
  8. ESTROGENS [Concomitant]
     Active Substance: ESTROGENS
     Indication: Hot flush
     Dosage: UNKNOWN,UNKNOWN
     Route: 065
  9. VITAMIN C [Concomitant]
     Active Substance: ASCORBIC ACID
     Indication: Mite allergy
     Dosage: UNKNOWN, UNKNOWN
     Route: 065
  10. VITAMINS [Concomitant]
     Active Substance: VITAMINS
     Indication: Supplementation therapy
     Dosage: UNKNOWN, UNKNOWN
     Route: 065
  11. PROBIOTIC                          /06395501/ [Concomitant]
     Indication: Constipation prophylaxis
     Dosage: UNKNOWN, UNKNOWN
     Route: 065
  12. MELATONIN [Concomitant]
     Active Substance: MELATONIN
     Indication: Insomnia
     Dosage: UNKNOWN, UNKNOWN
     Route: 065
  13. MAGNESIUM                          /00082501/ [Concomitant]
     Indication: Constipation prophylaxis
     Dosage: UNKNOWN, UNKNOWN
     Route: 065
  14. HERBALS\TURMERIC [Concomitant]
     Active Substance: HERBALS\TURMERIC
     Indication: Back pain
     Dosage: UNKNOWN, UNKNOWN
     Route: 065
     Dates: start: 2020
  15. HERBALS\TURMERIC [Concomitant]
     Active Substance: HERBALS\TURMERIC
     Indication: Arthritis

REACTIONS (2)
  - Eye irritation [Recovered/Resolved]
  - Off label use [Recovered/Resolved]

NARRATIVE: CASE EVENT DATE: 20200901
